FAERS Safety Report 19196625 (Version 2)
Quarter: 2021Q2

REPORT INFORMATION
  Report Type: Spontaneous
  Country: US (occurrence: US)
  Receive Date: 20210429
  Receipt Date: 20210628
  Transmission Date: 20210717
  Serious: Yes (Hospitalization)
  Sender: FDA-Public Use
  Company Number: US-TEVA-2021-US-1904690

PATIENT
  Age: 52 Year
  Sex: Female

DRUGS (2)
  1. CAPECITABINE. [Concomitant]
     Active Substance: CAPECITABINE
     Indication: COLON CANCER METASTATIC
     Dosage: CAPOX REGIMEN; ON DAYS 1?14, EVERY 21 DAYS
     Route: 048
  2. OXALIPLATIN. [Suspect]
     Active Substance: OXALIPLATIN
     Indication: COLON CANCER METASTATIC
     Dosage: CAPOX REGIMEN; ON DAY 1, EVERY 21 DAYS
     Route: 041

REACTIONS (2)
  - Freezing phenomenon [Recovering/Resolving]
  - Neurotoxicity [Recovering/Resolving]
